FAERS Safety Report 6901538-5 (Version None)
Quarter: 2010Q3

REPORT INFORMATION
  Report Type: 
  Country: None (occurrence: None)
  Receive Date: 20100803
  Receipt Date: 20080215
  Transmission Date: 20110219
  Serious: No
  Sender: FDA-Public Use
  Company Number: US-PFIZER INC-2008015041

PATIENT
  Sex: Female

DRUGS (1)
  1. LYRICA [Suspect]
     Indication: DEPRESSION
     Dates: start: 20080201

REACTIONS (3)
  - BALANCE DISORDER [None]
  - DRY MOUTH [None]
  - FEELING DRUNK [None]
